FAERS Safety Report 13490371 (Version 1)
Quarter: 2017Q2

REPORT INFORMATION
  Report Type: Spontaneous
  Country: US (occurrence: US)
  Receive Date: 20170427
  Receipt Date: 20170427
  Transmission Date: 20170830
  Serious: Yes (Other)
  Sender: FDA-Public Use
  Company Number: US-LUNDBECK-DKLU2029744

PATIENT
  Sex: Male

DRUGS (3)
  1. ONFI [Suspect]
     Active Substance: CLOBAZAM
     Route: 065
  2. ONFI [Suspect]
     Active Substance: CLOBAZAM
     Indication: INFANTILE SPASMS
     Route: 065
  3. DEPAKOTE [Concomitant]
     Active Substance: DIVALPROEX SODIUM
     Indication: PRODUCT USED FOR UNKNOWN INDICATION
     Route: 065

REACTIONS (1)
  - Drug withdrawal convulsions [Unknown]
